FAERS Safety Report 5865273-7 (Version None)
Quarter: 2008Q3

REPORT INFORMATION
  Report Type: 
  Country: None (occurrence: None)
  Receive Date: 20080829
  Receipt Date: 20080409
  Transmission Date: 20090109
  Serious: No
  Sender: FDA-Public Use
  Company Number: A0721890A

PATIENT
  Sex: Female

DRUGS (3)
  1. BECONASE [Suspect]
     Route: 045
  2. FLONASE [Suspect]
     Route: 045
  3. NO CONCURRENT MEDICATION [Concomitant]

REACTIONS (1)
  - EPISTAXIS [None]
